FAERS Safety Report 8396287-3 (Version None)
Quarter: 2012Q2

REPORT INFORMATION
  Report Type: 
  Country: None (occurrence: None)
  Receive Date: 20120530
  Receipt Date: 20110829
  Transmission Date: 20120825
  Serious: Yes (Other)
  Sender: FDA-Public Use
  Company Number: US-B.I. PHARMACEUTICALS,INC./RIDGEFIELD-2011-BP-21092BP

PATIENT

DRUGS (2)
  1. PRADAXA [Suspect]
     Dosage: 150 MG
  2. AMIODARONE HCL [Concomitant]

REACTIONS (2)
  - PROCEDURAL HAEMORRHAGE [None]
  - INTERNATIONAL NORMALISED RATIO INCREASED [None]
